FAERS Safety Report 9117133 (Version 1)
Quarter: 2013Q1

REPORT INFORMATION
  Report Type: Spontaneous
  Country: US (occurrence: US)
  Receive Date: 20130225
  Receipt Date: 20130225
  Transmission Date: 20140127
  Serious: No
  Sender: FDA-Public Use
  Company Number: US-009507513-1302USA011689

PATIENT
  Sex: Male

DRUGS (2)
  1. CORICIDIN HBP FLU [Suspect]
     Indication: PRODUCT USED FOR UNKNOWN INDICATION
     Dosage: UNK, QD
     Route: 048
  2. CORICIDIN HBP FLU [Suspect]
     Dosage: 8 DF, ONCE
     Route: 048

REACTIONS (3)
  - Drug ineffective [Unknown]
  - Overdose [Unknown]
  - Incorrect drug administration duration [Unknown]
